FAERS Safety Report 4714181-3 (Version None)
Quarter: 2005Q3

REPORT INFORMATION
  Report Type: 
  Country: None (occurrence: None)
  Receive Date: 20050713
  Receipt Date: 20050713
  Transmission Date: 20060218
  Serious: Yes (Death, Hospitalization)
  Sender: FDA-Public Use
  Company Number: None

PATIENT
  Sex: Male
  Weight: 77.6 kg

DRUGS (2)
  1. ZOLADEX [Suspect]
     Indication: PROSTATE CANCER
     Dosage: 10.8 MG SC 1 INJECTION Q 84 D
     Route: 058
     Dates: start: 19980619
  2. CASODEX [Suspect]
     Dosage: 50 MG TABS PO 1 TAB QD
     Route: 048
     Dates: start: 19980619

REACTIONS (1)
  - CEREBRAL INFARCTION [None]
